FAERS Safety Report 4885796-7 (Version None)
Quarter: 2006Q1

REPORT INFORMATION
  Report Type: 
  Country: None (occurrence: None)
  Receive Date: 20060117
  Receipt Date: 20051222
  Transmission Date: 20060701
  Serious: Yes (Other)
  Sender: FDA-Public Use
  Company Number: 2005P1000617

PATIENT
  Age: 67 Year
  Sex: Male
  Weight: 72 kg

DRUGS (9)
  1. RETEPLASE (RETEPLASE) [Suspect]
     Indication: ACUTE MYOCARDIAL INFARCTION
     Dosage: IV
     Route: 042
     Dates: start: 20051122, end: 20051122
  2. ABCIXIMAB (ABCIXIMAB) [Suspect]
     Indication: ACUTE MYOCARDIAL INFARCTION
     Dosage: IV
     Route: 042
     Dates: start: 20051122
  3. ASPIRIN [Concomitant]
  4. CARVEDILOL [Concomitant]
  5. RAMIPRIL [Concomitant]
  6. CLOPIDOGREL [Concomitant]
  7. SIMVASTATIN [Concomitant]
  8. OMEPRAZOLE [Concomitant]
  9. POTASSIUM CHLORIDE [Concomitant]

REACTIONS (5)
  - AORTIC ARTERIOSCLEROSIS [None]
  - BLOOD PRESSURE INCREASED [None]
  - CORONARY ARTERY STENOSIS [None]
  - EJECTION FRACTION DECREASED [None]
  - VENTRICULAR DYSFUNCTION [None]
